FAERS Safety Report 22005535 (Version 4)
Quarter: 2023Q2

REPORT INFORMATION
  Report Type: Spontaneous
  Country: US (occurrence: US)
  Receive Date: 20230217
  Receipt Date: 20230413
  Transmission Date: 20230721
  Serious: No
  Sender: FDA-Public Use
  Company Number: US-PFIZER INC-PV202300028814

PATIENT
  Age: 17 Year
  Sex: Male
  Weight: 72.562 kg

DRUGS (2)
  1. GENOTROPIN [Suspect]
     Active Substance: SOMATROPIN
     Dosage: 2 MG
  2. GENOTROPIN [Suspect]
     Active Substance: SOMATROPIN
     Dosage: 2 MG

REACTIONS (3)
  - Expired device used [Unknown]
  - Drug dose omission by device [Unknown]
  - Device malfunction [Unknown]
